FAERS Safety Report 15267613 (Version 2)
Quarter: 2019Q1

REPORT INFORMATION
  Report Type: Report from Study
  Country: US (occurrence: US)
  Receive Date: 20180811
  Receipt Date: 20190213
  Transmission Date: 20190417
  Serious: Yes (Other)
  Sender: FDA-Public Use
  Company Number: PHEH2018US032842

PATIENT
  Sex: Male

DRUGS (1)
  1. COSENTYX [Suspect]
     Active Substance: SECUKINUMAB
     Indication: ANKYLOSING SPONDYLITIS
     Dosage: 150 MG, QMO
     Route: 058

REACTIONS (7)
  - Speech disorder [Unknown]
  - Amnesia [Unknown]
  - Migraine [Unknown]
  - Pain [Not Recovered/Not Resolved]
  - Drug effect incomplete [Unknown]
  - Blepharospasm [Unknown]
  - Multiple sclerosis [Unknown]
